FAERS Safety Report 10020115 (Version 12)
Quarter: 2014Q3

REPORT INFORMATION
  Report Type: Report from Study
  Country: CA (occurrence: CA)
  Receive Date: 20140319
  Receipt Date: 20140821
  Transmission Date: 20150326
  Serious: Yes (Hospitalization, Other)
  Sender: FDA-Public Use
  Company Number: CA-ROCHE-1325353

PATIENT
  Age: 51 Year
  Sex: Male
  Weight: 76 kg

DRUGS (6)
  1. FISH OIL [Concomitant]
     Active Substance: FISH OIL
  2. AVASTIN [Suspect]
     Active Substance: BEVACIZUMAB
     Route: 042
     Dates: start: 20140411
  3. LOMUSTINE. [Concomitant]
     Active Substance: LOMUSTINE
     Route: 065
     Dates: start: 20140527
  4. PAXIL (CANADA) [Concomitant]
  5. AVASTIN [Suspect]
     Active Substance: BEVACIZUMAB
     Indication: GLIOBLASTOMA
     Route: 042
     Dates: start: 20131206, end: 20140801
  6. DEXAMETHASONE. [Suspect]
     Active Substance: DEXAMETHASONE
     Indication: PRODUCT USED FOR UNKNOWN INDICATION
     Route: 065

REACTIONS (23)
  - Dysphagia [Not Recovered/Not Resolved]
  - Insomnia [Not Recovered/Not Resolved]
  - Weight decreased [Not Recovered/Not Resolved]
  - Glioblastoma [Not Recovered/Not Resolved]
  - Fatigue [Not Recovered/Not Resolved]
  - Cough [Recovering/Resolving]
  - Dysphonia [Not Recovered/Not Resolved]
  - Vomiting [Recovered/Resolved]
  - Protein urine present [Unknown]
  - Neutrophil count increased [Unknown]
  - Drug ineffective [Unknown]
  - Gait disturbance [Unknown]
  - Nausea [Recovered/Resolved]
  - Swelling face [Recovering/Resolving]
  - Skin abrasion [Recovered/Resolved]
  - Aphonia [Not Recovered/Not Resolved]
  - Upper respiratory tract infection [Unknown]
  - White blood cell count increased [Not Recovered/Not Resolved]
  - Balance disorder [Unknown]
  - Pneumonia aspiration [Unknown]
  - Oropharyngeal pain [Recovering/Resolving]
  - Bacterial test positive [Not Recovered/Not Resolved]
  - Neutrophil count increased [Not Recovered/Not Resolved]

NARRATIVE: CASE EVENT DATE: 20131217
